FAERS Safety Report 8065443-6 (Version None)
Quarter: 2012Q1

REPORT INFORMATION
  Report Type: 
  Country: None (occurrence: None)
  Receive Date: 20120124
  Receipt Date: 20120119
  Transmission Date: 20120608
  Serious: Yes (Life-Threatening, Hospitalization, Other)
  Sender: FDA-Public Use
  Company Number: BE-ASTRAZENECA-2011SE39829

PATIENT
  Age: 11065 Day
  Sex: Female

DRUGS (21)
  1. LORAMET [Concomitant]
     Indication: SLEEP DISORDER THERAPY
     Route: 048
     Dates: start: 20110210
  2. VANDETANIB [Suspect]
     Route: 048
     Dates: start: 20110616, end: 20110616
  3. MEDROL [Concomitant]
     Indication: BACK PAIN
     Route: 048
     Dates: start: 20110307, end: 20110525
  4. VOLTAREN [Concomitant]
     Indication: BACK PAIN
     Route: 048
     Dates: start: 20110307
  5. LITICAN [Concomitant]
     Indication: PROPHYLAXIS OF NAUSEA AND VOMITING
     Route: 048
  6. MS CONTIN [Concomitant]
     Indication: BACK PAIN
     Dosage: AS REQUIRED
     Route: 048
     Dates: start: 20110520
  7. POLYETHYLENE GLYCOL [Concomitant]
     Indication: CONSTIPATION PROPHYLAXIS
     Dosage: AS REQUIRED
     Route: 048
     Dates: start: 20110210
  8. OXYCODONE HCL [Concomitant]
     Indication: BACK PAIN
     Route: 048
     Dates: start: 20110419
  9. ELTHYRONE [Concomitant]
     Indication: THYROID THERAPY
     Route: 048
     Dates: start: 20110210
  10. CALCIUM [Concomitant]
     Indication: MINERAL SUPPLEMENTATION
     Route: 048
     Dates: start: 20110210
  11. NALOXONE HCL [Concomitant]
     Indication: BACK PAIN
     Route: 048
     Dates: start: 20110210
  12. REDOMEX [Concomitant]
     Indication: BACK PAIN
     Route: 048
     Dates: start: 20110313
  13. PANTOPRAZOLE [Concomitant]
     Indication: PROPHYLAXIS AGAINST GASTROINTESTINAL ULCER
     Route: 048
  14. ALPHA LEO [Concomitant]
     Indication: MINERAL SUPPLEMENTATION
     Route: 048
     Dates: start: 20110210
  15. LORAZEPAM [Concomitant]
     Indication: SLEEP DISORDER THERAPY
     Route: 048
     Dates: start: 20110211
  16. CLOSAN [Concomitant]
     Indication: ANXIETY
     Route: 048
     Dates: start: 20110210
  17. LAXOBERON [Concomitant]
     Indication: CONSTIPATION PROPHYLAXIS
     Dosage: AS REQUIRED
     Route: 048
  18. VANDETANIB [Suspect]
     Indication: THYROID CANCER
     Route: 048
     Dates: start: 20110521, end: 20110527
  19. VANDETANIB [Suspect]
     Dosage: DOSE REDUCED
     Route: 048
     Dates: start: 20110617, end: 20110701
  20. ZOMETA [Concomitant]
     Indication: METASTASES TO BONE
     Route: 042
     Dates: start: 20110419
  21. IMODIUM [Concomitant]
     Indication: DIARRHOEA
     Dosage: AS REQUIRED
     Route: 048
     Dates: start: 20110301

REACTIONS (2)
  - INTESTINAL OBSTRUCTION [None]
  - LARGE INTESTINE PERFORATION [None]
